FAERS Safety Report 9936876 (Version 1)
Quarter: 2014Q1

REPORT INFORMATION
  Report Type: Spontaneous
  Country: US (occurrence: None)
  Receive Date: 20140115
  Receipt Date: 20140115
  Transmission Date: 20141002
  Serious: Yes (Other)
  Sender: FDA-Public Use
  Company Number: 2013AP008762

PATIENT
  Age: 66 Year
  Sex: Male

DRUGS (2)
  1. CLOPIDOGREL [Suspect]
     Dates: start: 2010
  2. ASPIRIN [Suspect]
     Dates: start: 2010

REACTIONS (1)
  - Gastrointestinal haemorrhage [None]
